FAERS Safety Report 24847389 (Version 1)
Quarter: 2025Q1

REPORT INFORMATION
  Report Type: Spontaneous
  Country: US (occurrence: US)
  Receive Date: 20250116
  Receipt Date: 20250116
  Transmission Date: 20250409
  Serious: No
  Sender: SPECGX
  Company Number: US-SPECGX-T202401797

PATIENT
  Sex: Female

DRUGS (1)
  1. HYDROMORPHONE [Suspect]
     Active Substance: HYDROMORPHONE
     Indication: Product used for unknown indication
     Route: 065

REACTIONS (2)
  - Burning sensation [Unknown]
  - Pruritus [Unknown]
